FAERS Safety Report 8834836 (Version 2)
Quarter: 2012Q4

REPORT INFORMATION
  Report Type: 
  Country: JP (occurrence: JP)
  Receive Date: 20121010
  Receipt Date: 20121031
  Transmission Date: 20130627
  Serious: Yes (Hospitalization)
  Sender: FDA-Public Use
  Company Number: JP-GLAXOSMITHKLINE-B0836386A

PATIENT
  Age: 17 Year
  Sex: Female

DRUGS (4)
  1. LAMICTAL [Suspect]
     Indication: EPILEPSY
     Route: 048
  2. RIVOTRIL [Concomitant]
     Indication: EPILEPSY
     Dosage: .5MG Twice per day
     Route: 048
  3. LIPITOR [Concomitant]
     Indication: LIPIDS ABNORMAL
     Dosage: 5MG Per day
     Route: 048
  4. LEXOTAN [Concomitant]
     Indication: INSOMNIA
     Dosage: 5MG Per day
     Route: 048

REACTIONS (3)
  - Overdose [Recovered/Resolved]
  - Depressed level of consciousness [Unknown]
  - Vision blurred [Unknown]
